FAERS Safety Report 23975468 (Version 2)
Quarter: 2024Q4

REPORT INFORMATION
  Report Type: Spontaneous
  Country: US (occurrence: US)
  Receive Date: 20240614
  Receipt Date: 20241018
  Transmission Date: 20250115
  Serious: No
  Sender: UCB
  Company Number: US-UCBSA-2024019807

PATIENT
  Sex: Male

DRUGS (1)
  1. BIMZELX [Suspect]
     Active Substance: BIMEKIZUMAB-BKZX
     Indication: Psoriasis
     Dosage: ON WEEK 0, 4, 8, 12, AND 16, THEN ONCE EVERY 8 WEEKS
     Route: 058

REACTIONS (2)
  - Psoriasis [Unknown]
  - Therapeutic response shortened [Unknown]
